FAERS Safety Report 6601355-X (Version None)
Quarter: 2010Q1

REPORT INFORMATION
  Report Type: 
  Country: None (occurrence: None)
  Receive Date: 20100225
  Receipt Date: 20100217
  Transmission Date: 20100710
  Serious: Yes (Other)
  Sender: FDA-Public Use
  Company Number: US-PFIZER INC-2010021795

PATIENT
  Sex: Female
  Weight: 71 kg

DRUGS (1)
  1. DEPO-PROVERA [Suspect]
     Indication: CONTRACEPTION
     Dosage: UNK

REACTIONS (4)
  - ARTHRALGIA [None]
  - RASH [None]
  - RHEUMATOID ARTHRITIS [None]
  - THYROID DISORDER [None]
